FAERS Safety Report 17103574 (Version 1)
Quarter: 2019Q4

REPORT INFORMATION
  Report Type: Spontaneous
  Country: BG (occurrence: BG)
  Receive Date: 20191203
  Receipt Date: 20191203
  Transmission Date: 20200122
  Serious: Yes (Hospitalization)
  Sender: FDA-Public Use
  Company Number: BG-ASTRAZENECA-2019SF70432

PATIENT
  Age: 38 Year
  Sex: Male

DRUGS (8)
  1. BUDESONIDE/FORMOTEROL [Suspect]
     Active Substance: BUDESONIDE\FORMOTEROL
     Indication: ASTHMA
     Dosage: 160/4.5 MCG 2X2 INHALATIONS DAILY AND AS NEEDED UNKNOWN
     Route: 055
  2. METHYLPREDNISOLONE. [Concomitant]
     Active Substance: METHYLPREDNISOLONE
     Dosage: 4 MG 5 TABLETS DAILY
  3. SALBUTAMOL [Concomitant]
     Active Substance: ALBUTEROL
     Dosage: EVERY DAY
  4. PREDNISOLONE. [Concomitant]
     Active Substance: PREDNISOLONE
     Dates: start: 2019
  5. OMALIZUMAB. [Concomitant]
     Active Substance: OMALIZUMAB
     Dates: start: 2015
  6. THEOPHYLLINE [Concomitant]
     Active Substance: THEOPHYLLINE ANHYDROUS
     Dosage: 300.0MG UNKNOWN
  7. TIOTROPIUM [Concomitant]
     Active Substance: TIOTROPIUM
     Dosage: 1X2 INHALATIONS
  8. MONTELUKAST [Concomitant]
     Active Substance: MONTELUKAST SODIUM
     Dosage: 10.0MG UNKNOWN

REACTIONS (1)
  - Asthma [Unknown]
